FAERS Safety Report 9461635 (Version 1)
Quarter: 2013Q3

REPORT INFORMATION
  Report Type: Report from Study
  Country: US (occurrence: US)
  Receive Date: 20130816
  Receipt Date: 20130816
  Transmission Date: 20140515
  Serious: Yes (Other)
  Sender: FDA-Public Use
  Company Number: US-ELI_LILLY_AND_COMPANY-US201308003209

PATIENT
  Sex: Female

DRUGS (1)
  1. OLANZAPINE LONG-ACTING IM [Suspect]

REACTIONS (1)
  - Platelet count decreased [Unknown]
